FAERS Safety Report 24566003 (Version 1)
Quarter: 2024Q4

REPORT INFORMATION
  Report Type: Spontaneous
  Country: DE (occurrence: DE)
  Receive Date: 20241030
  Receipt Date: 20241030
  Transmission Date: 20250115
  Serious: Yes (Hospitalization, Other)
  Sender: B BRAUN
  Company Number: DE-B.Braun Medical Inc.-2164121

PATIENT
  Sex: Male

DRUGS (17)
  1. SODIUM CHLORIDE [Suspect]
     Active Substance: SODIUM CHLORIDE
  2. GRANULOCYTE COLONY-STIMULATING FACTOR NOS [Suspect]
     Active Substance: GRANULOCYTE COLONY-STIMULATING FACTOR NOS
  3. CYCLOPHOSPHAMIDE [Suspect]
     Active Substance: CYCLOPHOSPHAMIDE
  4. METHOTREXATE [Suspect]
     Active Substance: METHOTREXATE
  5. MERCAPTOPURINE [Suspect]
     Active Substance: MERCAPTOPURINE
  6. METHOTREXATE [Suspect]
     Active Substance: METHOTREXATE
  7. MESNA [Suspect]
     Active Substance: MESNA
  8. ETOPOSIDE [Suspect]
     Active Substance: ETOPOSIDE
  9. DAUNORUBICIN [Suspect]
     Active Substance: DAUNORUBICIN
  10. PEGASPARGASE [Suspect]
     Active Substance: PEGASPARGASE
  11. RITUXIMAB [Suspect]
     Active Substance: RITUXIMAB
  12. METHOTREXATE [Suspect]
     Active Substance: METHOTREXATE
  13. LEUCOVORIN [Suspect]
     Active Substance: LEUCOVORIN\LEUCOVORIN CALCIUM
  14. VINCRISTINE [Suspect]
     Active Substance: VINCRISTINE
  15. VINDESINE [Suspect]
     Active Substance: VINDESINE
  16. CYTARABINE [Suspect]
     Active Substance: CYTARABINE
  17. DEXAMETHASONE [Suspect]
     Active Substance: DEXAMETHASONE

REACTIONS (3)
  - Foetal growth restriction [Recovered/Resolved]
  - Foetal exposure during pregnancy [Recovered/Resolved]
  - Low birth weight baby [Recovered/Resolved]
